FAERS Safety Report 6874770-7 (Version None)
Quarter: 2010Q3

REPORT INFORMATION
  Report Type: 
  Country: None (occurrence: None)
  Receive Date: 20100723
  Receipt Date: 20100707
  Transmission Date: 20110219
  Serious: Yes (Hospitalization)
  Sender: FDA-Public Use
  Company Number: A-US2010-35786

PATIENT
  Age: 47 Year
  Sex: Female

DRUGS (3)
  1. TRACLEER [Suspect]
     Indication: PULMONARY ARTERIAL HYPERTENSION
     Dosage: ORAL ; 62.5 MG, BID
     Route: 048
     Dates: start: 20100122, end: 20100218
  2. TRACLEER [Suspect]
     Indication: PULMONARY ARTERIAL HYPERTENSION
     Dosage: ORAL ; 62.5 MG, BID
     Route: 048
     Dates: start: 20100329
  3. TREPROSTINIL [Concomitant]

REACTIONS (14)
  - ABDOMINAL DISTENSION [None]
  - CONDITION AGGRAVATED [None]
  - DISEASE PROGRESSION [None]
  - ENTEROCOLITIS INFECTIOUS [None]
  - FLUID OVERLOAD [None]
  - HEPATIC CIRRHOSIS [None]
  - KIDNEY INFECTION [None]
  - LOWER GASTROINTESTINAL HAEMORRHAGE [None]
  - MEMORY IMPAIRMENT [None]
  - PERITONITIS BACTERIAL [None]
  - PORTOPULMONARY HYPERTENSION [None]
  - RENAL FAILURE [None]
  - TREATMENT NONCOMPLIANCE [None]
  - WEIGHT INCREASED [None]
